FAERS Safety Report 19548060 (Version 3)
Quarter: 2021Q3

REPORT INFORMATION
  Report Type: Spontaneous
  Country: US (occurrence: US)
  Receive Date: 20210714
  Receipt Date: 20210922
  Transmission Date: 20211014
  Serious: Yes (Hospitalization)
  Sender: FDA-Public Use
  Company Number: US-JNJFOC-20210718891

PATIENT
  Age: 78 Year
  Sex: Male
  Weight: 93.52 kg

DRUGS (3)
  1. PANTOPRAZOLE [Concomitant]
     Active Substance: PANTOPRAZOLE
     Indication: HYPERCHLORHYDRIA
  2. XARELTO [Suspect]
     Active Substance: RIVAROXABAN
     Indication: BLOOD CHOLESTEROL INCREASED
     Route: 048
     Dates: start: 201909
  3. LEVOTHYROXINE. [Concomitant]
     Active Substance: LEVOTHYROXINE
     Indication: THYROID DISORDER

REACTIONS (4)
  - Haematocrit decreased [Unknown]
  - Haemoglobin decreased [Recovering/Resolving]
  - Product use in unapproved indication [Unknown]
  - Off label use [Unknown]

NARRATIVE: CASE EVENT DATE: 20210702
